FAERS Safety Report 20566137 (Version 1)
Quarter: 2022Q1

REPORT INFORMATION
  Report Type: Spontaneous
  Country: CA (occurrence: CA)
  Receive Date: 20220308
  Receipt Date: 20220308
  Transmission Date: 20220424
  Serious: Yes (Hospitalization)
  Sender: FDA-Public Use
  Company Number: CA-TEVA-2022-CA-2013499

PATIENT
  Age: 80 Year
  Sex: Female

DRUGS (1)
  1. OXALIPLATIN [Suspect]
     Active Substance: OXALIPLATIN
     Route: 065

REACTIONS (5)
  - Dizziness [Unknown]
  - Flushing [Unknown]
  - Pallor [Unknown]
  - Unresponsive to stimuli [Unknown]
  - Heart rate increased [Unknown]
